FAERS Safety Report 18332551 (Version 2)
Quarter: 2020Q4

REPORT INFORMATION
  Report Type: Spontaneous
  Country: CH (occurrence: CH)
  Receive Date: 20200930
  Receipt Date: 20201005
  Transmission Date: 20210113
  Serious: Yes (Life-Threatening, Other)
  Sender: FDA-Public Use
  Company Number: CH-009507513-2009CHE010245

PATIENT

DRUGS (1)
  1. PEMBROLIZUMAB. [Suspect]
     Active Substance: PEMBROLIZUMAB
     Indication: METASTATIC MALIGNANT MELANOMA

REACTIONS (1)
  - Haemophagocytic lymphohistiocytosis [Unknown]
